FAERS Safety Report 7220600-3 (Version None)
Quarter: 2011Q1

REPORT INFORMATION
  Report Type: 
  Country: None (occurrence: None)
  Receive Date: 20110111
  Receipt Date: 20110105
  Transmission Date: 20110831
  Serious: Yes (Hospitalization)
  Sender: FDA-Public Use
  Company Number: US-PFIZER INC-2011001965

PATIENT
  Sex: Male
  Weight: 91.1 kg

DRUGS (10)
  1. ZOFRAN [Concomitant]
  2. FENTANYL [Concomitant]
     Dosage: PATCH
  3. NORVASC [Concomitant]
  4. COMPAZINE [Concomitant]
  5. DOCUSATE [Concomitant]
  6. OXYCODONE [Concomitant]
  7. SUTENT [Suspect]
     Indication: METASTATIC RENAL CELL CARCINOMA
     Dosage: 37.5 MG, UNK
     Dates: start: 20100625, end: 20110104
  8. GEMCITABINE [Suspect]
     Indication: METASTATIC RENAL CELL CARCINOMA
     Dosage: 600 MG/M2, UNK
     Dates: start: 20100625, end: 20101228
  9. FINASTERIDE [Concomitant]
  10. NEULASTA [Concomitant]

REACTIONS (1)
  - ATRIAL FLUTTER [None]
